FAERS Safety Report 26171878 (Version 1)
Quarter: 2025Q4

REPORT INFORMATION
  Report Type: Spontaneous
  Country: JP (occurrence: JP)
  Receive Date: 20251217
  Receipt Date: 20251217
  Transmission Date: 20260118
  Serious: Yes (Hospitalization, Other)
  Sender: GLAXOSMITHKLINE
  Company Number: JP-GSKJP-JP2025JPN160045AA

PATIENT
  Sex: Male

DRUGS (1)
  1. DAPRODUSTAT [Suspect]
     Active Substance: DAPRODUSTAT
     Dosage: UNK

REACTIONS (2)
  - Urinary tract infection [Unknown]
  - Compression fracture [Unknown]
